FAERS Safety Report 8460845-8 (Version None)
Quarter: 2012Q2

REPORT INFORMATION
  Report Type: 
  Country: None (occurrence: None)
  Receive Date: 20120624
  Receipt Date: 20120619
  Transmission Date: 20120825
  Serious: Yes (Death, Other)
  Sender: FDA-Public Use
  Company Number: US-AMGEN-USASP2011061658

PATIENT
  Age: 35 Year
  Sex: Male
  Weight: 271 kg

DRUGS (23)
  1. ACYCLOVIR [Concomitant]
     Dosage: 400 MG, BID
     Route: 048
  2. ARIXTRA [Concomitant]
     Dosage: 10 MG, QD
     Route: 058
  3. VITAMIN A                          /00056001/ [Concomitant]
  4. VITAMIN D [Concomitant]
  5. PLATELETS [Concomitant]
  6. LANTUS [Concomitant]
     Dosage: 80 UNIT, QD
     Route: 058
  7. OMEPRAZOLE [Concomitant]
     Dosage: 40 MG, BID
     Route: 048
  8. ALLOPURINOL [Concomitant]
     Dosage: 150 MG, QD
     Route: 048
  9. NPLATE [Suspect]
     Indication: THROMBOCYTOPENIA
     Dosage: 250 MUG, UNK
     Route: 058
     Dates: start: 20110505, end: 20110721
  10. BENADRYL [Concomitant]
     Dosage: 50 MG, PRN
  11. NEURONTIN [Concomitant]
     Dosage: 300 MG, Q8H
  12. KAYEXALATE [Concomitant]
     Dosage: 15 G, UNK
     Route: 048
  13. VITAMIN C                          /00008001/ [Concomitant]
  14. OSCAL D                            /00944201/ [Concomitant]
  15. ZYPREXA [Concomitant]
     Dosage: UNK UNK, BID
     Route: 048
  16. DAPTOMYCIN [Concomitant]
     Dosage: 1100 MG, UNK
     Route: 042
  17. OXYCODONE HCL [Concomitant]
     Dosage: 5-15MG. Q4 HOURS
     Route: 048
  18. IVIGLOB-EX [Concomitant]
     Dosage: UNK
  19. SODIUM BICARBONATE [Concomitant]
     Dosage: 650 MG, BID
     Route: 048
  20. NOVOLOG [Concomitant]
  21. MELATONIN [Concomitant]
     Dosage: 0.5 MG, QHS
  22. CORTICOSTEROIDS [Concomitant]
     Indication: THROMBOCYTOPENIA
  23. FLECAINIDE ACETATE [Concomitant]
     Dosage: UNK
     Dates: end: 20110616

REACTIONS (7)
  - INFECTION [None]
  - GRAFT VERSUS HOST DISEASE [None]
  - NON-HODGKIN'S LYMPHOMA [None]
  - POST PROCEDURAL INFECTION [None]
  - MULTI-ORGAN FAILURE [None]
  - SEPSIS [None]
  - RENAL FAILURE [None]
